FAERS Safety Report 7692224-5 (Version None)
Quarter: 2011Q3

REPORT INFORMATION
  Report Type: 
  Country: None (occurrence: None)
  Receive Date: 20110818
  Receipt Date: 20110810
  Transmission Date: 20111222
  Serious: Yes (Hospitalization)
  Sender: FDA-Public Use
  Company Number: CA-US-EMD SERONO, INC.-7076443

PATIENT
  Sex: Male

DRUGS (15)
  1. REBIF [Suspect]
     Indication: RELAPSING-REMITTING MULTIPLE SCLEROSIS
     Route: 058
     Dates: start: 20090510
  2. GLICLAZINE [Concomitant]
  3. SITAGLIPTIN [Concomitant]
  4. ASPIRIN [Concomitant]
  5. RAMIPRIL [Concomitant]
  6. PANTOPRAZOLE [Concomitant]
  7. DOMPERIDONE MALEATE [Concomitant]
  8. BISACODYL [Concomitant]
  9. METFORMIN [Concomitant]
  10. PREGABALIN [Concomitant]
  11. AMANTADINE HCL [Concomitant]
  12. CYANOCOBALAMIN [Concomitant]
  13. OXYCODONE HCL [Concomitant]
  14. LACTULOSE [Concomitant]
  15. NITROGLYCERIN [Concomitant]

REACTIONS (4)
  - CONVULSION [None]
  - OVERDOSE [None]
  - MEMORY IMPAIRMENT [None]
  - BALANCE DISORDER [None]
